FAERS Safety Report 7007724-0 (Version None)
Quarter: 2010Q3

REPORT INFORMATION
  Report Type: 
  Country: None (occurrence: None)
  Receive Date: 20100920
  Receipt Date: 20100908
  Transmission Date: 20110219
  Serious: Yes (Hospitalization)
  Sender: FDA-Public Use
  Company Number: 1000016238

PATIENT
  Age: 73 Year
  Sex: Male

DRUGS (8)
  1. MEMANTINE HCL [Suspect]
     Dosage: ORAL
     Route: 048
     Dates: start: 20090301, end: 20100301
  2. MEMANTINE [Suspect]
     Dosage: 20 MG (20 MG, 1 IN 1 D),ORAL
     Route: 048
     Dates: start: 20100301, end: 20100501
  3. GALANTAMINE HYDROBROMIDE [Suspect]
     Dosage: 16 MG (16 MG, 1IN 1 D) ORAL,  8 MG (8 MG, 1IN 1 D) ORAL
     Route: 048
     Dates: start: 20090301, end: 20100501
  4. GALANTAMINE HYDROBROMIDE [Suspect]
     Dosage: 16 MG (16 MG, 1IN 1 D) ORAL,  8 MG (8 MG, 1IN 1 D) ORAL
     Route: 048
     Dates: start: 20100501
  5. LEVOTHYROX (LEVOTHYROXINE SODIUM) (TABLETS) (LEVOTHYROXINE SODIUM) [Concomitant]
  6. TERCIAN (CYAMEMAZINE) (TABLETS) (CYAMEMAZINE) [Concomitant]
  7. KARDEGIC (ACETYLSALICYLATE LYSINE) (ACETYLSALICYLATE [Concomitant]
  8. PROPANOL (PROPRANOLOL HYDROCHLORIDE) (PROPRANOLOL HYDROCHLORIDE) [Concomitant]

REACTIONS (5)
  - ALANINE AMINOTRANSFERASE INCREASED [None]
  - ASPARTATE AMINOTRANSFERASE INCREASED [None]
  - BLOOD ALKALINE PHOSPHATASE INCREASED [None]
  - GAMMA-GLUTAMYLTRANSFERASE INCREASED [None]
  - JAUNDICE [None]
